FAERS Safety Report 12316048 (Version 1)
Quarter: 2016Q2

REPORT INFORMATION
  Report Type: Spontaneous
  Country: US (occurrence: US)
  Receive Date: 20160428
  Receipt Date: 20160428
  Transmission Date: 20160815
  Serious: Yes (Other)
  Sender: FDA-Public Use
  Company Number: US-JUBILANT HOLLISTERSTIER LLC-1051183

PATIENT
  Age: 51 Year
  Sex: Female

DRUGS (1)
  1. MOLDS, RUSTS AND SMUTS, CANDIDA ALBICANS [Suspect]
     Active Substance: CANDIDA ALBICANS
     Indication: OFF LABEL USE
     Route: 050
     Dates: start: 20160113, end: 20160113

REACTIONS (2)
  - Seizure [Recovered/Resolved]
  - Dizziness [Recovered/Resolved]

NARRATIVE: CASE EVENT DATE: 20160113
